FAERS Safety Report 4264116-5 (Version None)
Quarter: 2004Q1

REPORT INFORMATION
  Report Type: 
  Country: None (occurrence: None)
  Receive Date: 20040104
  Receipt Date: 20031216
  Transmission Date: 20041129
  Serious: Yes (Other)
  Sender: FDA-Public Use
  Company Number: 701300

PATIENT
  Age: 68 Year
  Sex: Female

DRUGS (2)
  1. AMEVIVE [Suspect]
     Indication: PSORIASIS
     Dosage: 7.5 MG QW IV
     Route: 042
     Dates: start: 20031001, end: 20031001
  2. AMEVIVE [Suspect]
     Indication: PSORIASIS
     Dosage: 15 MG QW IM
     Route: 030
     Dates: start: 20031001, end: 20031101

REACTIONS (11)
  - ALCOHOL USE [None]
  - ANAEMIA MACROCYTIC [None]
  - BLOOD IRON INCREASED [None]
  - BLOOD URINE PRESENT [None]
  - CONTUSION [None]
  - ECZEMA [None]
  - FALL [None]
  - HYPERSPLENISM ACQUIRED [None]
  - INJURY [None]
  - PLATELET COUNT DECREASED [None]
  - THROMBOCYTOPENIA [None]
